FAERS Safety Report 23736050 (Version 1)
Quarter: 2024Q2

REPORT INFORMATION
  Report Type: Spontaneous
  Country: US (occurrence: None)
  Receive Date: 20240411
  Receipt Date: 20240411
  Transmission Date: 20240716
  Serious: No
  Sender: FDA-Public Use
  Company Number: None

PATIENT
  Age: 23 Month
  Sex: Female

DRUGS (3)
  1. PROMACTA [Suspect]
     Active Substance: ELTROMBOPAG OLAMINE
     Indication: Thrombocytopenic purpura
     Dosage: FREQUENCY : DAILY;?
     Route: 048
  2. PREDNISONE [Concomitant]
     Active Substance: PREDNISONE
     Dates: start: 20231010, end: 20231110
  3. PREDNISONE [Concomitant]
     Active Substance: PREDNISONE
     Dates: start: 20240226, end: 20240310

REACTIONS (4)
  - Brain oedema [None]
  - Hypoxia [None]
  - Ischaemia [None]
  - Brain death [None]

NARRATIVE: CASE EVENT DATE: 20240405
